FAERS Safety Report 13082078 (Version 1)
Quarter: 2017Q1

REPORT INFORMATION
  Report Type: Spontaneous
  Country: AU (occurrence: AU)
  Receive Date: 20170103
  Receipt Date: 20170103
  Transmission Date: 20170428
  Serious: Yes (Other)
  Sender: FDA-Public Use
  Company Number: AU-G+W LABS-GW2016AU000226

PATIENT

DRUGS (6)
  1. LERCANIDIPINE [Concomitant]
     Active Substance: LERCANIDIPINE
  2. IMIQUIMOD. [Suspect]
     Active Substance: IMIQUIMOD
     Indication: BOWEN^S DISEASE
     Dosage: THRICE WEEKLY
     Route: 061
  3. ATENOLOL. [Concomitant]
     Active Substance: ATENOLOL
  4. CANDESARTAN CILEXETIL AND HYDROCHLOROTHIAZIDE [Concomitant]
     Active Substance: CANDESARTAN CILEXETIL\HYDROCHLOROTHIAZIDE
  5. AMITRIPTYLINE [Concomitant]
     Active Substance: AMITRIPTYLINE
  6. ASPIRIN. [Concomitant]
     Active Substance: ASPIRIN

REACTIONS (1)
  - Deafness neurosensory [Recovered/Resolved]
